FAERS Safety Report 8837650 (Version 1)
Quarter: 2012Q4

REPORT INFORMATION
  Report Type: 
  Country: US (occurrence: US)
  Receive Date: 20121012
  Receipt Date: 20121012
  Transmission Date: 20130627
  Serious: No
  Sender: FDA-Public Use
  Company Number: US-009507513-1210USA004794

PATIENT
  Age: 83 Year
  Sex: Female

DRUGS (3)
  1. JANUVIA [Suspect]
     Indication: TYPE 2 DIABETES MELLITUS
     Dosage: 50 mg, qd
     Route: 048
     Dates: start: 20120416, end: 2012
  2. JANUVIA [Suspect]
     Dosage: 100 mg, qd
     Route: 048
     Dates: start: 2012, end: 2012
  3. MESTINON [Concomitant]

REACTIONS (6)
  - Muscular weakness [Recovering/Resolving]
  - Visual impairment [Recovering/Resolving]
  - Skin depigmentation [Recovering/Resolving]
  - Nail disorder [Recovered/Resolved]
  - Malaise [Recovering/Resolving]
  - Therapeutic response unexpected [Recovered/Resolved]
